FAERS Safety Report 7826906 (Version 7)
Quarter: 2014Q3

REPORT INFORMATION
  Report Type: Spontaneous
  Country: US (occurrence: US)
  Receive Date: 20101130
  Receipt Date: 20140822
  Transmission Date: 20150326
  Serious: Yes (Hospitalization, Other)
  Sender: FDA-Public Use
  Company Number: US-009507513-2010SP004036

PATIENT
  Sex: Female
  Weight: 77.11 kg

DRUGS (2)
  1. NUVARING [Suspect]
     Active Substance: ETHINYL ESTRADIOL\ETONOGESTREL
     Indication: CONTRACEPTION
     Route: 067
     Dates: start: 200712, end: 200801
  2. NUVARING [Suspect]
     Active Substance: ETHINYL ESTRADIOL\ETONOGESTREL
     Dates: start: 200612

REACTIONS (5)
  - Microcytic anaemia [Unknown]
  - Pleurisy [Unknown]
  - Unintended pregnancy [Recovered/Resolved]
  - Pulmonary embolism [Unknown]
  - Gonorrhoea [Unknown]

NARRATIVE: CASE EVENT DATE: 2007
